FAERS Safety Report 16692173 (Version 3)
Quarter: 2019Q3

REPORT INFORMATION
  Report Type: Spontaneous
  Country: US (occurrence: US)
  Receive Date: 20190812
  Receipt Date: 20190824
  Transmission Date: 20191004
  Serious: Yes (Death, Hospitalization, Other)
  Sender: FDA-Public Use
  Company Number: US-009507513-1908USA001696

PATIENT
  Age: 76 Year
  Sex: Male
  Weight: 94.79 kg

DRUGS (6)
  1. DILANTIN [Concomitant]
     Active Substance: PHENYTOIN
     Indication: SEIZURE
     Dosage: 300 MILLIGRAM
     Route: 048
     Dates: start: 200107, end: 20070417
  2. TEMODAR [Suspect]
     Active Substance: TEMOZOLOMIDE
     Indication: MALIGNANT GLIOMA
  3. PAXIL [Concomitant]
     Active Substance: PAROXETINE HYDROCHLORIDE
     Indication: DEPRESSION
     Dosage: 20 MILLIGRAM (PRIOR TO JULY 2001)
     Route: 048
     Dates: start: 2001, end: 20121015
  4. TEMODAR [Suspect]
     Active Substance: TEMOZOLOMIDE
     Indication: BRAIN NEOPLASM
     Dosage: 450 MILLIGRAM, QD, 5 DAYS DAILY OF 28 DAYS, CYCLICAL
     Route: 048
     Dates: start: 20010820, end: 20020719
  5. LIPITOR [Concomitant]
     Active Substance: ATORVASTATIN CALCIUM
     Indication: BLOOD CHOLESTEROL INCREASED
     Dosage: 10 MILLIGRAM (PRIOR TO JULY 2001)
     Route: 048
     Dates: start: 2001, end: 20111018
  6. ANZEMET [Concomitant]
     Active Substance: DOLASETRON MESYLATE
     Indication: PROPHYLAXIS OF NAUSEA AND VOMITING
     Dosage: 100 MILLIGRAM, PRN
     Route: 048
     Dates: start: 20010820, end: 20020719

REACTIONS (1)
  - Myelodysplastic syndrome [Fatal]

NARRATIVE: CASE EVENT DATE: 20180403
